FAERS Safety Report 6119999-0 (Version None)
Quarter: 2009Q1

REPORT INFORMATION
  Report Type: 
  Country: None (occurrence: None)
  Receive Date: 20090316
  Receipt Date: 20090311
  Transmission Date: 20090719
  Serious: Yes (Life-Threatening, Hospitalization)
  Sender: FDA-Public Use
  Company Number: NL-B.I. PHARMACEUTICALS,INC./RIDGEFIELD-2009-BP-03143YA

PATIENT
  Sex: Male
  Weight: 114 kg

DRUGS (6)
  1. OMNIC OCAS ORODISPERSABLE CR [Suspect]
     Indication: MICTURITION DISORDER
     Dosage: .4MG
     Route: 048
     Dates: start: 20090226, end: 20090227
  2. FOSINOPRIL SODIUM [Concomitant]
     Dates: start: 20080806
  3. HYDROCHLOROTHIAZIDE [Concomitant]
     Dates: start: 20061006
  4. PANZYTRAT [Concomitant]
     Dates: start: 20020701
  5. METFORMINE HCL [Concomitant]
     Dates: start: 19991008
  6. PANTOZOL [Concomitant]
     Dates: start: 20070220

REACTIONS (1)
  - MYOCARDIAL INFARCTION [None]
